FAERS Safety Report 9355701 (Version 7)
Quarter: 2014Q2

REPORT INFORMATION
  Report Type: Report from Study
  Country: FR (occurrence: FR)
  Receive Date: 20130619
  Receipt Date: 20140416
  Transmission Date: 20141212
  Serious: Yes (Other)
  Sender: FDA-Public Use
  Company Number: FR-JNJFOC-20130610084

PATIENT
  Sex: Female
  Weight: 63 kg

DRUGS (7)
  1. XARELTO [Suspect]
     Indication: THROMBOSIS PROPHYLAXIS
     Route: 048
     Dates: start: 20121128, end: 20130521
  2. XARELTO [Suspect]
     Indication: CEREBROVASCULAR ACCIDENT PROPHYLAXIS
     Route: 048
     Dates: start: 20121128, end: 20130521
  3. COKENZEN [Concomitant]
     Route: 065
     Dates: start: 20020121
  4. JOSACINE [Concomitant]
     Route: 065
     Dates: start: 20130521, end: 20130521
  5. OFLOCET [Concomitant]
     Route: 065
     Dates: start: 20130522, end: 20130604
  6. KARDEGIC [Concomitant]
     Indication: CEREBROVASCULAR ACCIDENT PROPHYLAXIS
     Route: 065
     Dates: start: 20130522
  7. KARDEGIC [Concomitant]
     Indication: CEREBROVASCULAR ACCIDENT PROPHYLAXIS
     Route: 065
     Dates: start: 20051221, end: 20121126

REACTIONS (4)
  - Rash pruritic [Not Recovered/Not Resolved]
  - Urinary tract infection [Recovered/Resolved]
  - Fatigue [Recovered/Resolved]
  - Insomnia [Recovered/Resolved]
